FAERS Safety Report 9932931 (Version 2)
Quarter: 2015Q1

REPORT INFORMATION
  Report Type: Report from Study
  Country: US (occurrence: US)
  Receive Date: 20140228
  Receipt Date: 20150302
  Transmission Date: 20150721
  Serious: No
  Sender: FDA-Public Use
  Company Number: US-ABBVIE-13P-163-1075329-00

PATIENT
  Age: 37 Year
  Sex: Male
  Weight: 99.88 kg

DRUGS (6)
  1. ANDROGEL [Suspect]
     Active Substance: TESTOSTERONE
     Dosage: 2 PACKETS
     Route: 061
     Dates: end: 201302
  2. BYSTOLIC [Concomitant]
     Active Substance: NEBIVOLOL HYDROCHLORIDE
     Indication: HYPERTENSION
     Route: 048
  3. ANDROGEL [Suspect]
     Active Substance: TESTOSTERONE
     Dosage: 2, 40.5 MG PACKETS
     Route: 061
  4. ANDROGEL [Suspect]
     Active Substance: TESTOSTERONE
     Dosage: 3 X 40.5 MG PACKETS
     Route: 061
     Dates: start: 201412
  5. ANDROGEL [Suspect]
     Active Substance: TESTOSTERONE
     Dosage: 4 X 40.5 MG PACKETS
     Route: 061
     Dates: start: 201412
  6. ANDROGEL [Suspect]
     Active Substance: TESTOSTERONE
     Indication: BLOOD TESTOSTERONE DECREASED
     Route: 061
     Dates: start: 201208

REACTIONS (4)
  - Asthenia [Not Recovered/Not Resolved]
  - Drug ineffective [Not Recovered/Not Resolved]
  - Blood testosterone decreased [Not Recovered/Not Resolved]
  - Blood testosterone decreased [Not Recovered/Not Resolved]

NARRATIVE: CASE EVENT DATE: 201208
